FAERS Safety Report 4634773-X (Version None)
Quarter: 2005Q2

REPORT INFORMATION
  Report Type: 
  Country: None (occurrence: None)
  Receive Date: 20050412
  Receipt Date: 20050404
  Transmission Date: 20051028
  Serious: Yes (Disabling, Other)
  Sender: FDA-Public Use
  Company Number: 163-20785-05020556

PATIENT
  Age: 70 Year
  Sex: Male
  Weight: 74.8435 kg

DRUGS (3)
  1. THALOMID (THALIDOMIDE) (200 MILLIGRAM, CAPSULES) [Suspect]
     Indication: MULTIPLE MYELOMA
     Dosage: 200 MG, QHS, ORAL
     Route: 048
     Dates: start: 20030501, end: 20040802
  2. THALOMID (THALIDOMIDE) (200 MILLIGRAM, CAPSULES) [Suspect]
  3. ZOMETA [Suspect]
     Dosage: MONTHLY, INTRAVENOUS
     Route: 042
     Dates: start: 20030401, end: 20040801

REACTIONS (7)
  - BLOOD PRESSURE DIASTOLIC DECREASED [None]
  - DYSPHAGIA [None]
  - EDENTULOUS [None]
  - MUCOSAL INFLAMMATION [None]
  - OSTEONECROSIS [None]
  - SPEECH DISORDER [None]
  - WEIGHT DECREASED [None]
